FAERS Safety Report 7688910-3 (Version None)
Quarter: 2011Q3

REPORT INFORMATION
  Report Type: 
  Country: None (occurrence: None)
  Receive Date: 20110817
  Receipt Date: 20110805
  Transmission Date: 20111222
  Serious: Yes (Hospitalization, Other)
  Sender: FDA-Public Use
  Company Number: PHHY2011TW71895

PATIENT
  Age: 37 Year
  Sex: Female

DRUGS (5)
  1. METHYLERGONOVINE MALEATE [Suspect]
     Route: 042
  2. METHYLERGONOVINE MALEATE [Suspect]
     Indication: POSTPARTUM HAEMORRHAGE
     Dosage: 0.2 MG, INTRA MYOMETRIAL INJECTION
  3. OXYTOCIN [Suspect]
     Indication: POSTPARTUM HAEMORRHAGE
     Dosage: 10 IU, CONTINUOUS IV INFUSION AT A RATE OF 20 MIU /MIN
  4. METHYLERGONOVINE MALEATE [Suspect]
     Dosage: 0.2 MG, Q8H
     Route: 042
  5. OXYTOCIN [Suspect]

REACTIONS (21)
  - DYSPNOEA [None]
  - BLOOD LACTATE DEHYDROGENASE INCREASED [None]
  - VENTRICULAR HYPOKINESIA [None]
  - EJECTION FRACTION DECREASED [None]
  - HAEMODYNAMIC INSTABILITY [None]
  - ELECTROCARDIOGRAM Q WAVE ABNORMAL [None]
  - HYPOTENSION [None]
  - OLIGURIA [None]
  - BLOOD CREATINE PHOSPHOKINASE MB INCREASED [None]
  - ARTERIOSPASM CORONARY [None]
  - ATRIAL FIBRILLATION [None]
  - MYOCARDIAL INFARCTION [None]
  - LACTIC ACIDOSIS [None]
  - ASPARTATE AMINOTRANSFERASE INCREASED [None]
  - BLOOD CREATINE PHOSPHOKINASE INCREASED [None]
  - ELECTROCARDIOGRAM QRS COMPLEX ABNORMAL [None]
  - BLOOD PRESSURE SYSTOLIC DECREASED [None]
  - ACUTE PULMONARY OEDEMA [None]
  - ELECTROCARDIOGRAM ST SEGMENT ELEVATION [None]
  - VENTRICULAR EXTRASYSTOLES [None]
  - VENTRICULAR TACHYCARDIA [None]
